FAERS Safety Report 8388471-X (Version None)
Quarter: 2012Q2

REPORT INFORMATION
  Report Type: 
  Country: None (occurrence: None)
  Receive Date: 20120525
  Receipt Date: 20120522
  Transmission Date: 20120825
  Serious: Yes (Death)
  Sender: FDA-Public Use
  Company Number: PL-ROCHE-1058643

PATIENT
  Age: 65 Year
  Sex: Female
  Weight: 51.6 kg

DRUGS (3)
  1. VEMURAFENIB [Suspect]
     Indication: METASTATIC MALIGNANT MELANOMA
     Route: 048
     Dates: start: 20120228, end: 20120406
  2. METFORMIN HYDROCHLORIDE [Concomitant]
     Dates: start: 20120301
  3. RAMIPRIL [Concomitant]
     Dates: start: 20120301

REACTIONS (2)
  - DEATH [None]
  - FATIGUE [None]
